FAERS Safety Report 5593772-4 (Version None)
Quarter: 2007Q4

REPORT INFORMATION
  Report Type: 
  Country: None (occurrence: None)
  Receive Date: 20071218
  Receipt Date: 20070122
  Transmission Date: 20080405
  Serious: Yes (Hospitalization, Other)
  Sender: FDA-Public Use
  Company Number: 2006008432

PATIENT
  Age: 56 Year
  Sex: Male
  Weight: 99.8 kg

DRUGS (1)
  1. BEXTRA [Suspect]
     Indication: ARTHRITIS
     Dosage: 40 MG (20 MG,2 IN 1 D)
     Dates: start: 20021101, end: 20040601

REACTIONS (2)
  - HYPERTENSION [None]
  - MYOCARDIAL INFARCTION [None]
